FAERS Safety Report 10068697 (Version 2)
Quarter: 2014Q2

REPORT INFORMATION
  Report Type: Spontaneous
  Country: US (occurrence: US)
  Receive Date: 20140409
  Receipt Date: 20140409
  Transmission Date: 20141212
  Serious: No
  Sender: FDA-Public Use
  Company Number: US-MYLANLABS-2014S1001994

PATIENT
  Age: 58 Year
  Sex: Female

DRUGS (12)
  1. METOPROLOL SUCCINATE EXTENDED-RELEASE TABLETS USP [Suspect]
     Indication: SUPRAVENTRICULAR TACHYCARDIA
     Route: 048
     Dates: start: 20131223, end: 20140108
  2. METOPROLOL SUCCINATE EXTENDED-RELEASE TABLETS USP [Suspect]
     Indication: PALPITATIONS
     Route: 048
     Dates: start: 20131223, end: 20140108
  3. METOPROLOL SUCCINATE EXTENDED-RELEASE TABLETS USP [Suspect]
     Indication: OFF LABEL USE
     Route: 048
     Dates: start: 20131223, end: 20140108
  4. IMIPRAMINE [Concomitant]
     Indication: BLADDER DISORDER
     Dosage: 10-20MG
  5. MULTIVITAMIN [Concomitant]
  6. ZINC [Concomitant]
  7. LUTEIN + [Concomitant]
  8. VITAMIN C [Concomitant]
  9. VITAMIN D [Concomitant]
  10. FISH OIL [Concomitant]
  11. CALCIUM [Concomitant]
  12. CLONAZEPAM [Concomitant]
     Indication: BLADDER PAIN
     Dosage: PRN

REACTIONS (3)
  - Drug ineffective for unapproved indication [Recovered/Resolved]
  - Palpitations [Recovered/Resolved]
  - Supraventricular tachycardia [Recovered/Resolved]
